FAERS Safety Report 5676525-8 (Version None)
Quarter: 2008Q1

REPORT INFORMATION
  Report Type: 
  Country: None (occurrence: None)
  Receive Date: 20080324
  Receipt Date: 20080312
  Transmission Date: 20080703
  Serious: Yes (Other)
  Sender: FDA-Public Use
  Company Number: ES-RANBAXY-2008RR-13791

PATIENT

DRUGS (3)
  1. CIPROFLOXACIN [Suspect]
     Indication: DIARRHOEA
  2. CLARITHROMYCIN [Suspect]
     Indication: DIARRHOEA
  3. TINIDAZOLE [Suspect]
     Indication: DIARRHOEA

REACTIONS (1)
  - CLOSTRIDIUM DIFFICILE COLITIS [None]
